FAERS Safety Report 6582257-4 (Version None)
Quarter: 2010Q1

REPORT INFORMATION
  Report Type: 
  Country: None (occurrence: None)
  Receive Date: 20100216
  Receipt Date: 20100111
  Transmission Date: 20100710
  Serious: No
  Sender: FDA-Public Use
  Company Number: A0812060A

PATIENT
  Age: 68 Year
  Sex: Female

DRUGS (5)
  1. VERAMYST [Suspect]
     Dosage: 4SPR PER DAY
     Route: 045
     Dates: start: 20090929, end: 20091001
  2. ATENOLOL [Concomitant]
  3. SIMVASTATIN [Concomitant]
  4. VICODIN [Concomitant]
  5. AMBIEN [Concomitant]

REACTIONS (2)
  - BACK PAIN [None]
  - HEADACHE [None]
